FAERS Safety Report 8575913-X (Version None)
Quarter: 2012Q3

REPORT INFORMATION
  Report Type: 
  Country: None (occurrence: None)
  Receive Date: 20120807
  Receipt Date: 20120801
  Transmission Date: 20120928
  Serious: Yes (Other)
  Sender: FDA-Public Use
  Company Number: US-SANOFI-AVENTIS-2012SA055627

PATIENT
  Sex: Female

DRUGS (5)
  1. VOLTAREN [Suspect]
     Indication: ARTHRITIS
     Route: 061
     Dates: start: 20120707, end: 20120707
  2. ALL OTHER THERAPEUTIC PRODUCTS [Concomitant]
  3. ZOLPIDEM TARTRATE [Suspect]
     Route: 048
  4. ASPIRIN [Concomitant]
     Route: 048
  5. SIMETICONE [Concomitant]

REACTIONS (19)
  - CHOKING SENSATION [None]
  - MUSCULOSKELETAL PAIN [None]
  - DYSPEPSIA [None]
  - MYOCARDIAL INFARCTION [None]
  - INSOMNIA [None]
  - PAIN IN EXTREMITY [None]
  - CONSTIPATION [None]
  - BURNING SENSATION [None]
  - ABDOMINAL PAIN UPPER [None]
  - CHEST PAIN [None]
  - PAIN [None]
  - GASTROINTESTINAL HAEMORRHAGE [None]
  - ERYTHEMA [None]
  - HYPERTENSION [None]
  - PARAESTHESIA [None]
  - DECREASED APPETITE [None]
  - DYSPNOEA [None]
  - DRY EYE [None]
  - SPEECH DISORDER [None]
